FAERS Safety Report 9393396 (Version 1)
Quarter: 2013Q3

REPORT INFORMATION
  Report Type: Spontaneous
  Country: JP (occurrence: JP)
  Receive Date: 20130710
  Receipt Date: 20130710
  Transmission Date: 20140515
  Serious: Yes (Other)
  Sender: FDA-Public Use
  Company Number: PHHY2013JP073090

PATIENT
  Sex: 0

DRUGS (2)
  1. NEORAL [Suspect]
     Indication: OFF LABEL USE
     Route: 048
  2. NEORAL [Suspect]
     Indication: MYELODYSPLASTIC SYNDROME

REACTIONS (1)
  - Aplastic anaemia [Unknown]
